FAERS Safety Report 6425891-4 (Version None)
Quarter: 2009Q4

REPORT INFORMATION
  Report Type: 
  Country: None (occurrence: None)
  Receive Date: 20091029
  Receipt Date: 20091013
  Transmission Date: 20100525
  Serious: Yes (Hospitalization, Other)
  Sender: FDA-Public Use
  Company Number: 2007S1006587

PATIENT
  Age: 55 Year
  Sex: Male
  Weight: 92.5338 kg

DRUGS (2)
  1. PHOSPHOSODA FLAVOR NOT SPECIFIED [Suspect]
     Indication: COLONOSCOPY
     Dosage: PO
     Route: 048
     Dates: start: 20061019, end: 20061019
  2. SYNTHROID [Concomitant]

REACTIONS (4)
  - DIARRHOEA [None]
  - DRUG TOXICITY [None]
  - RENAL FAILURE [None]
  - TUBULOINTERSTITIAL NEPHRITIS [None]
